FAERS Safety Report 25251002 (Version 1)
Quarter: 2025Q2

REPORT INFORMATION
  Report Type: Spontaneous
  Country: US (occurrence: US)
  Receive Date: 20250429
  Receipt Date: 20250429
  Transmission Date: 20250717
  Serious: Yes (Life-Threatening, Other)
  Sender: SANDOZ
  Company Number: US-SANDOZ-SDZ2025US026095

PATIENT

DRUGS (3)
  1. CARBOPLATIN [Suspect]
     Active Substance: CARBOPLATIN
     Indication: Chemotherapy
     Route: 065
  2. DURVALUMAB [Suspect]
     Active Substance: DURVALUMAB
     Indication: Chemotherapy
     Route: 065
  3. PEMETREXED [Suspect]
     Active Substance: PEMETREXED
     Indication: Chemotherapy
     Route: 065

REACTIONS (2)
  - Fatigue [Unknown]
  - Cardiac failure [Unknown]
